FAERS Safety Report 21396029 (Version 1)
Quarter: 2022Q3

REPORT INFORMATION
  Report Type: Spontaneous
  Country: GB (occurrence: GB)
  Receive Date: 20220930
  Receipt Date: 20220930
  Transmission Date: 20221026
  Serious: Yes (Other)
  Sender: FDA-Public Use
  Company Number: GB-MHRA-MED-202209282229237200-FSRWH

PATIENT
  Age: 31 Year
  Sex: Female

DRUGS (1)
  1. PROVERA [Suspect]
     Active Substance: MEDROXYPROGESTERONE ACETATE
     Indication: Menstrual disorder
     Dosage: UNK
     Dates: start: 20220902, end: 20220910

REACTIONS (6)
  - Hypertension [Recovered/Resolved]
  - Dizziness [Unknown]
  - Hyperhidrosis [Unknown]
  - Heart rate increased [Unknown]
  - Off label use [Unknown]
  - Product use issue [Unknown]

NARRATIVE: CASE EVENT DATE: 20220906
